FAERS Safety Report 4291997-1 (Version None)
Quarter: 2004Q1

REPORT INFORMATION
  Report Type: 
  Country: None (occurrence: None)
  Receive Date: 20040210
  Receipt Date: 20040210
  Transmission Date: 20041129
  Serious: Yes (Other)
  Sender: FDA-Public Use
  Company Number: None

PATIENT
  Sex: Female
  Weight: 62.1428 kg

DRUGS (7)
  1. MIRALAX [Suspect]
     Indication: CONSTIPATION
     Dosage: 1-1 1/2 DAILY ORAL
     Route: 048
     Dates: start: 20010101, end: 20040209
  2. MIRALAX [Suspect]
     Indication: GASTROINTESTINAL MOTILITY DISORDER
     Dosage: 1-1 1/2 DAILY ORAL
     Route: 048
     Dates: start: 20010101, end: 20040209
  3. MIRALAX [Suspect]
     Indication: IMPAIRED GASTRIC EMPTYING
     Dosage: 1-1 1/2 DAILY ORAL
     Route: 048
     Dates: start: 20010101, end: 20040209
  4. FLAGYL [Concomitant]
  5. NYSTATIN [Concomitant]
  6. LIDOCAINE [Concomitant]
  7. TETRACYLCLENE MOUTH RINSE [Concomitant]

REACTIONS (2)
  - DIARRHOEA [None]
  - PHARMACEUTICAL PRODUCT COMPLAINT [None]
